FAERS Safety Report 9298116 (Version 1)
Quarter: 2012Q4

REPORT INFORMATION
  Report Type: Spontaneous
  Country: US (occurrence: None)
  Receive Date: 20121031
  Receipt Date: 20121031
  Transmission Date: 20130627
  Serious: Yes (Hospitalization, Other)
  Sender: FDA-Public Use
  Company Number: 2012ML000073

PATIENT
  Age: 4 Month
  Sex: Female

DRUGS (1)
  1. BUPRENORPHINE [Suspect]

REACTIONS (12)
  - Withdrawal syndrome [None]
  - Yawning [None]
  - Sneezing [None]
  - Mydriasis [None]
  - Agitation [None]
  - Hyperhidrosis [None]
  - Hyperreflexia [None]
  - Myoclonus [None]
  - Tremor [None]
  - Insomnia [None]
  - Exposure during breast feeding [None]
  - Foetal exposure during pregnancy [None]
